FAERS Safety Report 25031278 (Version 1)
Quarter: 2025Q1

REPORT INFORMATION
  Report Type: Spontaneous
  Country: ES (occurrence: ES)
  Receive Date: 20250303
  Receipt Date: 20250303
  Transmission Date: 20250409
  Serious: Yes (Life-Threatening, Hospitalization, Disabling)
  Sender: MERCK SHARP & DOHME LLC
  Company Number: None

PATIENT
  Age: 62 Year
  Sex: Male

DRUGS (9)
  1. PEMBROLIZUMAB [Suspect]
     Active Substance: PEMBROLIZUMAB
     Indication: Large cell lung cancer stage IV
     Route: 042
     Dates: start: 20241205
  2. TRELEGY ELLIPTA 92 MICROGRAMS/55 MICROGRAMS/22 MICROGRAMS POWDER FO... [Concomitant]
     Dosage: 1 INHALATION EVERY 24 HOURS
     Route: 055
     Dates: start: 20240614
  3. CARBOPLATIN [Suspect]
     Active Substance: CARBOPLATIN
     Indication: Large cell lung cancer stage IV
     Dosage: 1 CYCLE EVERY 21 DAYS
     Route: 042
     Dates: start: 20241205
  4. PEMETREXED [Suspect]
     Active Substance: PEMETREXED
     Indication: Large cell lung cancer stage IV
     Route: 042
     Dates: start: 20241205
  5. DURVALUMAB [Suspect]
     Active Substance: DURVALUMAB
     Indication: Large cell lung cancer stage IV
     Route: 042
     Dates: start: 20241022, end: 20241119
  6. ATORVASTATIN NORMOGEN 10 MG FILM-COATED TABLETS EFG, 28 tablets [Concomitant]
     Route: 048
     Dates: start: 20230314
  7. OPTOVITE B12 1,000 MICROGRAMS SOLUTION FOR INJECTION, 5 ampoules of... [Concomitant]
     Route: 030
     Dates: start: 20240703
  8. ACFOL 5 mg TABLETS, 28 tablets [Concomitant]
     Route: 048
     Dates: start: 20240703
  9. ODEFSEY 200 MG/25 MG/25 MG FILM-COATED TABLETS, 30 tablets [Concomitant]
     Route: 048
     Dates: start: 202104

REACTIONS (1)
  - Pneumonitis [Not Recovered/Not Resolved]

NARRATIVE: CASE EVENT DATE: 20250112
